FAERS Safety Report 16186842 (Version 1)
Quarter: 2019Q2

REPORT INFORMATION
  Report Type: Spontaneous
  Country: CA (occurrence: CA)
  Receive Date: 20190411
  Receipt Date: 20190411
  Transmission Date: 20190711
  Serious: Yes (Life-Threatening, Hospitalization)
  Sender: FDA-Public Use
  Company Number: CA-PFIZER INC-3051693

PATIENT
  Age: 37 Year
  Sex: Female

DRUGS (12)
  1. MORPHINE SULFATE. [Interacting]
     Active Substance: MORPHINE SULFATE
     Dosage: 0.1 MG, UNK
     Route: 037
  2. MORPHINE SULFATE. [Interacting]
     Active Substance: MORPHINE SULFATE
     Dosage: 4 MG (2 DOSES OF 2MG)
     Route: 058
  3. ACETAMINOPHEN. [Interacting]
     Active Substance: ACETAMINOPHEN
     Dosage: 4 DF, 1X/DAY
     Route: 051
  4. MORPHINE SULFATE. [Interacting]
     Active Substance: MORPHINE SULFATE
     Dosage: 1 MG, UNK
     Route: 037
  5. NALOXONE [Interacting]
     Active Substance: NALOXONE
     Dosage: 0.28 MG, UNK
  6. HYDROMORPHONE HYDROCHLORIDE. [Interacting]
     Active Substance: HYDROMORPHONE HYDROCHLORIDE
     Dosage: 2 MG, 1X/DAY
  7. DICLOFENAC [Interacting]
     Active Substance: DICLOFENAC
     Dosage: 50 MG, 3X/DAY
  8. BUPIVACAINE HCL [Suspect]
     Active Substance: BUPIVACAINE HYDROCHLORIDE
     Dosage: 0.75 %, UNK
     Route: 008
  9. MORPHINE SULFATE. [Interacting]
     Active Substance: MORPHINE SULFATE
     Dosage: 1 MG, UNK
     Route: 042
  10. FENTANYL CITRATE. [Interacting]
     Active Substance: FENTANYL CITRATE
     Dosage: 0.01 MG, UNK
     Route: 037
  11. KETOROLAC TROMETHAMINE. [Interacting]
     Active Substance: KETOROLAC TROMETHAMINE
     Dosage: 30 MG, UNK
     Route: 042
  12. MORPHINE SULFATE. [Interacting]
     Active Substance: MORPHINE SULFATE
     Dosage: 2 MG, UNK

REACTIONS (6)
  - Drug interaction [Unknown]
  - Blood pressure increased [Unknown]
  - Respiratory rate decreased [Unknown]
  - Maternal exposure during pregnancy [Unknown]
  - Respiratory depression [Unknown]
  - Unresponsive to stimuli [Unknown]
